FAERS Safety Report 15185213 (Version 2)
Quarter: 2018Q3

REPORT INFORMATION
  Report Type: Report from Study
  Country: US (occurrence: US)
  Receive Date: 20180723
  Receipt Date: 20180801
  Transmission Date: 20181010
  Serious: Yes (Other)
  Sender: FDA-Public Use
  Company Number: US-MALLINCKRODT-T201802380

PATIENT
  Sex: Male

DRUGS (3)
  1. REPOSITORY CORTICOTROPIN INJECTION [Suspect]
     Active Substance: CORTICOTROPIN
     Dosage: 80 UNIT, 2 TIMES PER WEEK
     Route: 058
     Dates: start: 20180511, end: 20180712
  2. REPOSITORY CORTICOTROPIN INJECTION [Suspect]
     Active Substance: CORTICOTROPIN
     Indication: NEPHROTIC SYNDROME
     Dosage: 80 UNITS/1 ML, 2 TIMES PER WEEK, WEDNESDAY/SATURDAY
     Route: 058
     Dates: start: 20180519, end: 20180624
  3. LOSARTAN. [Concomitant]
     Active Substance: LOSARTAN
     Indication: PRODUCT USED FOR UNKNOWN INDICATION
     Dosage: 100 MG, UNK
     Route: 065

REACTIONS (15)
  - Dysphonia [Not Recovered/Not Resolved]
  - Depression [Unknown]
  - Immunodeficiency [Unknown]
  - Dizziness [Unknown]
  - Anaemia [Not Recovered/Not Resolved]
  - Renal impairment [Unknown]
  - Swelling face [Not Recovered/Not Resolved]
  - Hyperglycaemia [Unknown]
  - Inflammation [Not Recovered/Not Resolved]
  - Insomnia [Unknown]
  - Muscular weakness [Not Recovered/Not Resolved]
  - Weight increased [Unknown]
  - Fatigue [Not Recovered/Not Resolved]
  - Visual impairment [Not Recovered/Not Resolved]
  - Abdominal distension [Unknown]

NARRATIVE: CASE EVENT DATE: 2018
